FAERS Safety Report 19662607 (Version 1)
Quarter: 2021Q3

REPORT INFORMATION
  Report Type: Spontaneous
  Country: DE (occurrence: DE)
  Receive Date: 20210805
  Receipt Date: 20210805
  Transmission Date: 20211014
  Serious: Yes (Hospitalization)
  Sender: FDA-Public Use
  Company Number: NVSC2021DE174953

PATIENT
  Age: 53 Year
  Sex: Male
  Weight: 80 kg

DRUGS (1)
  1. MTX HEXAL 10 MG TABLETTEN [Suspect]
     Active Substance: METHOTREXATE SODIUM
     Indication: PRODUCT USED FOR UNKNOWN INDICATION
     Dosage: 10 MG, MONTAGS EINE TABLETTE FR?H, TABLETTEN
     Route: 048

REACTIONS (3)
  - Peripheral swelling [Unknown]
  - Pyrexia [Unknown]
  - Wound [Unknown]
